FAERS Safety Report 6793477-8 (Version None)
Quarter: 2010Q2

REPORT INFORMATION
  Report Type: 
  Country: None (occurrence: None)
  Receive Date: 20100624
  Receipt Date: 20100513
  Transmission Date: 20101027
  Serious: Yes (Other)
  Sender: FDA-Public Use
  Company Number: US-MYLANLABS-2010S1005853

PATIENT
  Age: 41 Year
  Sex: Male

DRUGS (8)
  1. CLOZAPINE [Suspect]
     Indication: SCHIZOAFFECTIVE DISORDER BIPOLAR TYPE
     Route: 048
     Dates: end: 20100331
  2. CLOZAPINE [Suspect]
     Indication: PSYCHOTIC DISORDER
     Route: 048
     Dates: end: 20100331
  3. CLOZAPINE [Suspect]
     Route: 048
     Dates: end: 20100331
  4. CLOZAPINE [Suspect]
     Route: 048
     Dates: end: 20100331
  5. DEPAKOTE [Concomitant]
     Route: 048
  6. PROPRANOLOL [Concomitant]
     Indication: HYPERTENSION
     Route: 048
  7. BUSPAR [Concomitant]
     Indication: ANXIETY
     Route: 048
  8. RISPERDAL [Concomitant]
     Indication: SCHIZOAFFECTIVE DISORDER BIPOLAR TYPE
     Route: 048

REACTIONS (2)
  - GRANULOCYTOPENIA [None]
  - LEUKOPENIA [None]
